FAERS Safety Report 18958630 (Version 1)
Quarter: 2021Q1

REPORT INFORMATION
  Report Type: Spontaneous
  Country: PH (occurrence: PH)
  Receive Date: 20210302
  Receipt Date: 20210302
  Transmission Date: 20210420
  Serious: Yes (Life-Threatening, Hospitalization)
  Sender: FDA-Public Use
  Company Number: PH-LUPIN PHARMACEUTICALS INC.-2021-02521

PATIENT
  Age: 34 Year
  Sex: Female

DRUGS (4)
  1. LEUPROLIDE [LEUPRORELIN] [Suspect]
     Active Substance: LEUPROLIDE ACETATE
     Indication: ARTERIOVENOUS MALFORMATION
     Dosage: UNK
     Route: 065
  2. LEUPROLIDE [LEUPRORELIN] [Suspect]
     Active Substance: LEUPROLIDE ACETATE
     Indication: UTERINE DISORDER
  3. METHYLERGONOVINE [Suspect]
     Active Substance: METHYLERGONOVINE
     Indication: ARTERIOVENOUS MALFORMATION
     Dosage: UNK
     Route: 065
  4. METHYLERGONOVINE [Suspect]
     Active Substance: METHYLERGONOVINE
     Indication: UTERINE DISORDER

REACTIONS (1)
  - Drug ineffective [Unknown]
